FAERS Safety Report 22334843 (Version 1)
Quarter: 2023Q2

REPORT INFORMATION
  Report Type: Other
  Country: CA (occurrence: CA)
  Receive Date: 20230518
  Receipt Date: 20230518
  Transmission Date: 20230721
  Serious: Yes (Hospitalization, Other)
  Sender: FDA-Public Use
  Company Number: CA-CELLTRION INC.-2023CA010082

PATIENT

DRUGS (24)
  1. RITUXIMAB [Suspect]
     Active Substance: RITUXIMAB
     Indication: Non-Hodgkin^s lymphoma recurrent
     Dosage: 780 MG
     Route: 065
  2. CARBOPLATIN [Suspect]
     Active Substance: CARBOPLATIN
     Indication: Non-Hodgkin^s lymphoma recurrent
     Dosage: 360 MG
     Route: 042
  3. IFOSFAMIDE [Suspect]
     Active Substance: IFOSFAMIDE
     Indication: Non-Hodgkin^s lymphoma recurrent
     Dosage: 8300 MG
     Route: 042
  4. MESNA [Suspect]
     Active Substance: MESNA
     Indication: Non-Hodgkin^s lymphoma recurrent
     Dosage: 2000 MG
  5. ETOPOSIDE [Suspect]
     Active Substance: ETOPOSIDE
     Indication: Non-Hodgkin^s lymphoma recurrent
     Dosage: 166 MG
     Route: 065
  6. ACETAMINOPHEN [Concomitant]
     Active Substance: ACETAMINOPHEN
  7. ALLOPURINOL [Concomitant]
     Active Substance: ALLOPURINOL
  8. ATORVASTATIN [Concomitant]
     Active Substance: ATORVASTATIN
     Route: 065
  9. DEXAMETHASONE [Concomitant]
     Active Substance: DEXAMETHASONE
     Route: 065
  10. DEXILANT [Concomitant]
     Active Substance: DEXLANSOPRAZOLE
  11. DIPHENHYDRAMINE [Concomitant]
     Active Substance: DIPHENHYDRAMINE
  12. ELIQUIS [Concomitant]
     Active Substance: APIXABAN
  13. ENTECAVIR [Concomitant]
     Active Substance: ENTECAVIR
  14. FILGRASTIM [Concomitant]
     Active Substance: FILGRASTIM
  15. FUROSEMIDE [Concomitant]
     Active Substance: FUROSEMIDE
     Route: 065
  16. GLICLAZIDE [Concomitant]
     Active Substance: GLICLAZIDE
  17. GRANISETRON [Concomitant]
     Active Substance: GRANISETRON
  18. LINAGLIPTIN\METFORMIN HYDROCHLORIDE [Concomitant]
     Active Substance: LINAGLIPTIN\METFORMIN HYDROCHLORIDE
  19. LORAZEPAM [Concomitant]
     Active Substance: LORAZEPAM
     Route: 065
  20. PROCHLORPERAZINE [Concomitant]
     Active Substance: PROCHLORPERAZINE
  21. TAMSULOSIN [Concomitant]
     Active Substance: TAMSULOSIN
  22. TEMAZEPAM [Concomitant]
     Active Substance: TEMAZEPAM
  23. VALACYCLOVIR [Concomitant]
     Active Substance: VALACYCLOVIR HYDROCHLORIDE
  24. AMLODIPINE [Concomitant]
     Active Substance: AMLODIPINE BESYLATE
     Route: 065

REACTIONS (3)
  - Colitis [Recovered/Resolved]
  - Bacteraemia [Recovered/Resolved]
  - Febrile neutropenia [Recovered/Resolved]
